FAERS Safety Report 17659650 (Version 1)
Quarter: 2020Q2

REPORT INFORMATION
  Report Type: Report from Study
  Country: None (occurrence: US)
  Receive Date: 20200413
  Receipt Date: 20200413
  Transmission Date: 20200713
  Serious: Yes (Other)
  Sender: FDA-Public Use
  Company Number: US-ABBVIE-20K-163-3360785-00

PATIENT
  Sex: Female

DRUGS (1)
  1. HUMIRA [Suspect]
     Active Substance: ADALIMUMAB
     Indication: RHEUMATOID ARTHRITIS
     Route: 058

REACTIONS (5)
  - Hernia [Recovered/Resolved]
  - Weight abnormal [Recovering/Resolving]
  - Pain in extremity [Not Recovered/Not Resolved]
  - Hernia [Unknown]
  - Neck pain [Not Recovered/Not Resolved]
